FAERS Safety Report 9671476 (Version 3)
Quarter: 2014Q1

REPORT INFORMATION
  Report Type: Spontaneous
  Country: IT (occurrence: None)
  Receive Date: 20131104
  Receipt Date: 20140131
  Transmission Date: 20141002
  Serious: No
  Sender: FDA-Public Use
  Company Number: AUR-APL-2013-09119

PATIENT
  Age: 81 Year
  Sex: Male

DRUGS (4)
  1. BISOPROLOL (BISOPROLOL) [Suspect]
     Indication: PRODUCT USED FOR UNKNOWN INDICATION
     Route: 048
     Dates: start: 20130101, end: 20130914
  2. TORADIUR (TORASEMIDE) [Concomitant]
  3. ACETYLSALICYLIC ACID (ACETYLSALICYLIC AICD) [Concomitant]
  4. RAMIPRIL (RAMIPRIL) [Concomitant]

REACTIONS (3)
  - Bradycardia [None]
  - Syncope [None]
  - Bundle branch block left [None]
